FAERS Safety Report 6073622-2 (Version None)
Quarter: 2009Q1

REPORT INFORMATION
  Report Type: 
  Country: None (occurrence: None)
  Receive Date: 20090211
  Receipt Date: 20090130
  Transmission Date: 20090719
  Serious: Yes (Hospitalization, Disabling, Other)
  Sender: FDA-Public Use
  Company Number: JP-PFIZER INC-2009156835

PATIENT

DRUGS (5)
  1. SUNITINIB MALATE [Suspect]
     Dosage: 50 MG, 1X/DAY
     Route: 048
     Dates: start: 20081106
  2. NORVASC [Concomitant]
     Route: 048
  3. BLOPRESS [Concomitant]
     Route: 048
  4. URSO 250 [Concomitant]
     Route: 048
  5. ZOMETA [Concomitant]
     Route: 042
     Dates: start: 20081113

REACTIONS (7)
  - AORTIC DISSECTION [None]
  - DYSGEUSIA [None]
  - HEPATIC FUNCTION ABNORMAL [None]
  - PALMAR-PLANTAR ERYTHRODYSAESTHESIA SYNDROME [None]
  - PANCREATIC DISORDER [None]
  - PLATELET COUNT DECREASED [None]
  - PYREXIA [None]
